FAERS Safety Report 12394756 (Version 1)
Quarter: 2016Q2

REPORT INFORMATION
  Report Type: Spontaneous
  Country: US (occurrence: US)
  Receive Date: 20160523
  Receipt Date: 20160523
  Transmission Date: 20160815
  Serious: No
  Sender: FDA-Public Use
  Company Number: US-NOVOPROD-466810

PATIENT
  Age: 19 Year
  Sex: Male

DRUGS (1)
  1. NORDITROPIN [Suspect]
     Active Substance: SOMATROPIN
     Indication: INSULIN-LIKE GROWTH FACTOR DECREASED
     Dosage: UNK
     Route: 058

REACTIONS (4)
  - Insulin-like growth factor decreased [Unknown]
  - Agitation [Unknown]
  - Mood altered [Unknown]
  - Emotional disorder [Unknown]
